FAERS Safety Report 6460530-8 (Version None)
Quarter: 2009Q4

REPORT INFORMATION
  Report Type: 
  Country: None (occurrence: None)
  Receive Date: 20091130
  Receipt Date: 20091117
  Transmission Date: 20100525
  Serious: Yes (Other)
  Sender: FDA-Public Use
  Company Number: US-JNJFOC-20091105405

PATIENT
  Age: 49 Year
  Sex: Male
  Weight: 64.86 kg

DRUGS (3)
  1. IMODIUM A-D [Suspect]
     Route: 048
     Dates: start: 20070101
  2. IMODIUM A-D [Suspect]
     Indication: DIARRHOEA
     Dosage: 2 CAPLETS PER DAY AS NECESSARY
     Route: 048
     Dates: start: 20070101
  3. ASACOL [Concomitant]
     Indication: COLITIS
     Dosage: 2-6 TABLETS A DAY

REACTIONS (5)
  - DIARRHOEA [None]
  - DRUG INEFFECTIVE [None]
  - PRODUCT COUNTERFEIT [None]
  - PRODUCT PACKAGING ISSUE [None]
  - THERAPEUTIC RESPONSE UNEXPECTED [None]
